FAERS Safety Report 6812118-4 (Version None)
Quarter: 2010Q3

REPORT INFORMATION
  Report Type: 
  Country: None (occurrence: None)
  Receive Date: 20100701
  Receipt Date: 20090924
  Transmission Date: 20110219
  Serious: No
  Sender: FDA-Public Use
  Company Number: US-ABBOTT-09P-163-0599767-00

PATIENT
  Sex: Female

DRUGS (1)
  1. NORVIR [Suspect]
     Indication: HIV INFECTION

REACTIONS (1)
  - CATARACT [None]
